FAERS Safety Report 18222123 (Version 1)
Quarter: 2020Q3

REPORT INFORMATION
  Report Type: Spontaneous
  Country: US (occurrence: US)
  Receive Date: 20200902
  Receipt Date: 20200902
  Transmission Date: 20201103
  Serious: No
  Sender: FDA-Public Use
  Company Number: None

PATIENT
  Age: 78 Year
  Sex: Female

DRUGS (2)
  1. PROHANCE [Suspect]
     Active Substance: GADOTERIDOL
     Indication: X-RAY WITH CONTRAST
     Dosage: ?          OTHER FREQUENCY:ONCE PER IMAGING;?
     Route: 042
     Dates: start: 20200818, end: 20200818
  2. PROHANCE [Concomitant]
     Active Substance: GADOTERIDOL
     Dates: start: 20200818, end: 20200818

REACTIONS (1)
  - Urticaria [None]

NARRATIVE: CASE EVENT DATE: 20200818
